FAERS Safety Report 8093880-2 (Version None)
Quarter: 2012Q1

REPORT INFORMATION
  Report Type: 
  Country: None (occurrence: None)
  Receive Date: 20120129
  Receipt Date: 20111030
  Transmission Date: 20120608
  Serious: No
  Sender: FDA-Public Use
  Company Number: US-ABBOTT-11P-163-0869798-00

PATIENT
  Age: 53 Year
  Sex: Male

DRUGS (16)
  1. METFORMIN HCL [Concomitant]
     Indication: DIABETES MELLITUS
  2. BALSALAZIDE DISODIUM [Concomitant]
     Indication: CROHN'S DISEASE
     Dosage: 750MG - 5 IN AM AND  4 IN PM
  3. LISINOPRIL [Concomitant]
     Indication: HYPERTENSION
     Dosage: 40 MG DAILY
  4. PRILOSEC [Concomitant]
     Indication: GASTROOESOPHAGEAL REFLUX DISEASE
     Dosage: 20 MG DAILY
  5. HYDROCHLOROTHIAZIDE [Concomitant]
     Indication: HYPERTENSION
     Dosage: 20MG DAILY
  6. CALCIUM [Concomitant]
     Indication: PRODUCT USED FOR UNKNOWN INDICATION
  7. M.V.I. [Concomitant]
     Indication: PRODUCT USED FOR UNKNOWN INDICATION
     Dosage: DAILY
  8. METROGEL [Concomitant]
     Indication: PRODUCT USED FOR UNKNOWN INDICATION
     Route: 061
  9. HUMIRA [Suspect]
     Indication: CROHN'S DISEASE
     Dates: start: 20110825
  10. SLOW FE [Concomitant]
     Indication: PRODUCT USED FOR UNKNOWN INDICATION
     Dates: start: 20010101
  11. VIT C [Concomitant]
     Indication: PRODUCT USED FOR UNKNOWN INDICATION
  12. NORCO [Concomitant]
     Indication: PAIN
     Dosage: 10/325 - ONE FOUR TIMES DAILY
  13. VITAMIN B-12 [Concomitant]
     Indication: PRODUCT USED FOR UNKNOWN INDICATION
     Dosage: DAILY
  14. SIMVASTATIN [Concomitant]
     Indication: BLOOD CHOLESTEROL INCREASED
     Dosage: 20 MG DAILY
  15. FLUTICASONE PROPIONATE [Concomitant]
     Indication: PRODUCT USED FOR UNKNOWN INDICATION
  16. TRAZODONE HCL [Concomitant]
     Indication: PRODUCT USED FOR UNKNOWN INDICATION
     Dosage: AT BEDTIME
     Dates: start: 20080101

REACTIONS (2)
  - DYSURIA [None]
  - BLOOD URINE PRESENT [None]
